FAERS Safety Report 9713491 (Version 2)
Quarter: 2014Q1

REPORT INFORMATION
  Report Type: Spontaneous
  Country: PT (occurrence: PT)
  Receive Date: 20131126
  Receipt Date: 20140116
  Transmission Date: 20141002
  Serious: Yes (Life-Threatening, Hospitalization, Other)
  Sender: FDA-Public Use
  Company Number: PT-GLAXOSMITHKLINE-B0947830A

PATIENT
  Age: 54 Year
  Sex: Female

DRUGS (5)
  1. BENLYSTA [Suspect]
     Indication: SYSTEMIC LUPUS ERYTHEMATOSUS
     Dosage: 10MGK UNKNOWN
     Route: 042
     Dates: start: 20131015
  2. AZATHIOPRINE [Concomitant]
     Dosage: 50MG PER DAY
     Route: 065
  3. HYDROXYCHLOROQUINE [Concomitant]
     Dosage: 400MG PER DAY
     Route: 065
  4. PREDNISOLONE [Concomitant]
     Dosage: 10MG PER DAY
     Route: 065
  5. FUROSEMIDE [Concomitant]
     Dosage: 40MG PER DAY
     Route: 065

REACTIONS (3)
  - Acute myocardial infarction [Recovered/Resolved]
  - Electrocardiogram ST segment elevation [Recovered/Resolved]
  - Electrocardiogram T wave amplitude decreased [Recovered/Resolved]
